FAERS Safety Report 18897893 (Version 1)
Quarter: 2021Q1

REPORT INFORMATION
  Report Type: Other
  Country: US (occurrence: US)
  Receive Date: 20210216
  Receipt Date: 20210216
  Transmission Date: 20210420
  Serious: Yes (Other)
  Sender: FDA-Public Use
  Company Number: US-ROCHE-2762515

PATIENT

DRUGS (1)
  1. TOCILIZUMAB. [Suspect]
     Active Substance: TOCILIZUMAB
     Indication: COVID-19
     Route: 065

REACTIONS (7)
  - Off label use [Unknown]
  - Sepsis [Unknown]
  - Pneumonia [Unknown]
  - Clostridium difficile infection [Unknown]
  - Intentional product use issue [Unknown]
  - Abdominal infection [Unknown]
  - Urinary tract infection [Unknown]
